FAERS Safety Report 9745464 (Version 1)
Quarter: 2013Q4

REPORT INFORMATION
  Report Type: Spontaneous
  Country: US (occurrence: None)
  Receive Date: 20131206
  Receipt Date: 20131206
  Transmission Date: 20140711
  Serious: Yes (Death)
  Sender: FDA-Public Use
  Company Number: None

PATIENT
  Age: 30 Day
  Sex: Male
  Weight: 80.74 kg

DRUGS (3)
  1. AMITRIPTYLINE [Suspect]
     Indication: DEPRESSION
     Dosage: 100MG, ONCE DAILY, TAKEN BY MOUTH
     Dates: start: 20111210, end: 20111219
  2. AMITRIPTYLINE [Suspect]
     Indication: ANXIETY
     Dosage: 100MG, ONCE DAILY, TAKEN BY MOUTH
     Dates: start: 20111210, end: 20111219
  3. AMITRIPTYLINE [Suspect]
     Indication: PANIC ATTACK
     Dosage: 100MG, ONCE DAILY, TAKEN BY MOUTH
     Dates: start: 20111210, end: 20111219

REACTIONS (5)
  - Overdose [None]
  - Depression [None]
  - Anxiety [None]
  - Panic reaction [None]
  - Suicide attempt [None]
